FAERS Safety Report 11874995 (Version 1)
Quarter: 2015Q4

REPORT INFORMATION
  Report Type: Spontaneous
  Country: US (occurrence: US)
  Receive Date: 20151229
  Receipt Date: 20151229
  Transmission Date: 20160305
  Serious: Yes (Other)
  Sender: FDA-Public Use
  Company Number: PHEH2015US008057

PATIENT
  Sex: Female
  Weight: 52.12 kg

DRUGS (2)
  1. TOBI [Suspect]
     Active Substance: TOBRAMYCIN
     Indication: BRONCHIECTASIS
     Dosage: 5 ML, BID
     Route: 055
  2. TOBI [Suspect]
     Active Substance: TOBRAMYCIN
     Indication: MYCOBACTERIUM AVIUM COMPLEX INFECTION
     Dosage: 2.5 ML, QD FOR 28 DAYS, EVERY OTHER MONTH
     Route: 055
     Dates: start: 20130220

REACTIONS (3)
  - Asthenia [Recovering/Resolving]
  - Off label use [Unknown]
  - Dizziness [Recovering/Resolving]
